APPROVED DRUG PRODUCT: PREDNISONE
Active Ingredient: PREDNISONE
Strength: 1MG
Dosage Form/Route: TABLET;ORAL
Application: A040890 | Product #001
Applicant: HIKMA PHARMACEUTICALS LLC
Approved: Nov 1, 2010 | RLD: No | RS: No | Type: DISCN